FAERS Safety Report 6121618-4 (Version None)
Quarter: 2009Q1

REPORT INFORMATION
  Report Type: 
  Country: None (occurrence: None)
  Receive Date: 20090317
  Receipt Date: 20090304
  Transmission Date: 20090719
  Serious: Yes (Hospitalization, Other)
  Sender: FDA-Public Use
  Company Number: PHHY2009FR03402

PATIENT
  Sex: Female

DRUGS (9)
  1. LESCOL [Suspect]
     Indication: HYPERCHOLESTEROLAEMIA
     Dosage: UNK
     Route: 048
     Dates: start: 20031201, end: 20041101
  2. FRACTAL [Concomitant]
     Indication: HYPERCHOLESTEROLAEMIA
     Dosage: UNK
     Route: 048
     Dates: start: 20020101, end: 20030101
  3. ZOCOR [Concomitant]
     Indication: HYPERCHOLESTEROLAEMIA
     Dosage: 1 DF, QD
     Route: 048
     Dates: start: 20041201, end: 20051001
  4. CRESTOR [Concomitant]
     Indication: HYPERCHOLESTEROLAEMIA
     Dosage: UNK
     Route: 048
     Dates: start: 20070101, end: 20070601
  5. EZETROL [Concomitant]
     Indication: HYPERCHOLESTEROLAEMIA
     Dosage: 20 MG, QD
     Route: 048
     Dates: start: 20051101, end: 20060301
  6. LIPANTHYL [Concomitant]
     Indication: HYPERCHOLESTEROLAEMIA
     Dosage: UNK
     Route: 048
     Dates: start: 20060301, end: 20061201
  7. QUESTRAN [Concomitant]
     Indication: HYPERCHOLESTEROLAEMIA
     Dosage: UNK
     Route: 048
     Dates: start: 20070701, end: 20080501
  8. BONIVA [Concomitant]
     Indication: OSTEOPOROSIS
     Dosage: UNK
  9. STATICONCEPT [Concomitant]

REACTIONS (19)
  - APHONIA [None]
  - ARTHRALGIA [None]
  - BRONCHOALVEOLAR LAVAGE [None]
  - C-REACTIVE PROTEIN INCREASED [None]
  - CHEST PAIN [None]
  - CHEST X-RAY ABNORMAL [None]
  - COUGH [None]
  - DYSPNOEA [None]
  - DYSPNOEA EXERTIONAL [None]
  - ENDOSCOPY [None]
  - HEADACHE [None]
  - INTERSTITIAL LUNG DISEASE [None]
  - MYALGIA [None]
  - ORGANISING PNEUMONIA [None]
  - PAIN [None]
  - PRODUCTIVE COUGH [None]
  - PYREXIA [None]
  - RESPIRATORY DISORDER [None]
  - WHITE BLOOD CELL COUNT INCREASED [None]
